FAERS Safety Report 7523209-7 (Version None)
Quarter: 2011Q2

REPORT INFORMATION
  Report Type: 
  Country: None (occurrence: None)
  Receive Date: 20110603
  Receipt Date: 20110519
  Transmission Date: 20111010
  Serious: Yes (Hospitalization)
  Sender: FDA-Public Use
  Company Number: KR-WATSON-2011-07512

PATIENT
  Age: 77 Year
  Sex: Female

DRUGS (1)
  1. FLUOROURACIL [Suspect]
     Indication: ADENOCARCINOMA
     Dosage: 32 MG, DAILY
     Route: 042
     Dates: start: 20100101

REACTIONS (1)
  - MANIA [None]
